FAERS Safety Report 11215795 (Version 1)
Quarter: 2015Q2

REPORT INFORMATION
  Report Type: Report from Study
  Country: US (occurrence: US)
  Receive Date: 20150624
  Receipt Date: 20150624
  Transmission Date: 20150821
  Serious: Yes (Death, Hospitalization, Other)
  Sender: FDA-Public Use
  Company Number: US-ASTELLAS-2015US017948

PATIENT
  Age: 74 Year
  Sex: Male

DRUGS (2)
  1. AMIODARONE [Concomitant]
     Active Substance: AMIODARONE
     Indication: ATRIAL FIBRILLATION
     Route: 065
  2. ISAVUCONAZOLE [Suspect]
     Active Substance: ISAVUCONAZOLE
     Indication: HEPATOSPLENIC CANDIDIASIS
     Dosage: UNK, UNKNOWN FREQ.
     Route: 065

REACTIONS (7)
  - Leukaemia recurrent [Fatal]
  - Seizure [Unknown]
  - Confusional state [Unknown]
  - Dyspnoea exertional [Unknown]
  - Mental status changes [Unknown]
  - Fall [Unknown]
  - Fatigue [Unknown]

NARRATIVE: CASE EVENT DATE: 20150605
